FAERS Safety Report 8335577-7 (Version None)
Quarter: 2012Q2

REPORT INFORMATION
  Report Type: 
  Country: None (occurrence: None)
  Receive Date: 20120504
  Receipt Date: 20120425
  Transmission Date: 20120825
  Serious: Yes (Other)
  Sender: FDA-Public Use
  Company Number: US-AMGEN-USASP2012025282

PATIENT
  Age: 53 Year
  Sex: Female

DRUGS (1)
  1. ENBREL [Suspect]
     Indication: RHEUMATOID ARTHRITIS
     Dosage: 50 MG, QWK
     Dates: start: 20111205

REACTIONS (14)
  - TREMOR [None]
  - PAIN [None]
  - NASOPHARYNGITIS [None]
  - PNEUMONIA [None]
  - MALAISE [None]
  - TYPE 2 DIABETES MELLITUS [None]
  - ASTHENIA [None]
  - PULMONARY CONGESTION [None]
  - HYPERHIDROSIS [None]
  - FEELING ABNORMAL [None]
  - BRONCHITIS [None]
  - BONE NEOPLASM [None]
  - COUGH [None]
  - ASTHMA [None]
